FAERS Safety Report 7642339-2 (Version None)
Quarter: 2011Q3

REPORT INFORMATION
  Report Type: 
  Country: None (occurrence: None)
  Receive Date: 20110722
  Receipt Date: 20110709
  Transmission Date: 20111222
  Serious: Yes (Other)
  Sender: FDA-Public Use
  Company Number: 2011SP032408

PATIENT
  Age: 52 Year
  Sex: Female

DRUGS (2)
  1. RIBAVIRIN [Suspect]
     Indication: HEPATITIS C
     Dates: start: 20110201
  2. PEG-INTRON [Suspect]
     Indication: HEPATITIS C
     Dates: start: 20110201

REACTIONS (17)
  - VISUAL ACUITY REDUCED [None]
  - DRY SKIN [None]
  - SWOLLEN TONGUE [None]
  - TONGUE DISCOLOURATION [None]
  - DEHYDRATION [None]
  - PHARYNGITIS BACTERIAL [None]
  - HYPERTRICHOSIS [None]
  - ALOPECIA [None]
  - MOUTH HAEMORRHAGE [None]
  - APHAGIA [None]
  - SINUSITIS [None]
  - LARYNGITIS [None]
  - FLUID INTAKE REDUCED [None]
  - CONDITION AGGRAVATED [None]
  - APHASIA [None]
  - WHITE BLOOD CELL COUNT ABNORMAL [None]
  - LIP SWELLING [None]
